FAERS Safety Report 5288253-1 (Version None)
Quarter: 2007Q2

REPORT INFORMATION
  Report Type: 
  Country: None (occurrence: None)
  Receive Date: 20070403
  Receipt Date: 20070403
  Transmission Date: 20071010
  Serious: No
  Sender: FDA-Public Use
  Company Number: None

PATIENT
  Age: 33 Year
  Sex: Female
  Weight: 85 kg

DRUGS (3)
  1. SENSORCAINE [Suspect]
     Indication: CAESAREAN SECTION
     Dosage: 12.75 MG   ONE DOSE    EPIDURAL
     Route: 008
     Dates: start: 20070326, end: 20070326
  2. SENSORCAINE [Suspect]
     Indication: SPINAL ANAESTHESIA
     Dosage: 12.75 MG   ONE DOSE    EPIDURAL
     Route: 008
     Dates: start: 20070326, end: 20070326
  3. SENSORCAINE [Suspect]

REACTIONS (3)
  - ANAESTHETIC COMPLICATION [None]
  - CAESAREAN SECTION [None]
  - DRUG INEFFECTIVE [None]
